FAERS Safety Report 8822380 (Version 2)
Quarter: 2012Q4

REPORT INFORMATION
  Report Type: 
  Country: JP (occurrence: JP)
  Receive Date: 20121003
  Receipt Date: 20121129
  Transmission Date: 20130627
  Serious: Yes (Hospitalization, Other)
  Sender: FDA-Public Use
  Company Number: PHHY2012JP085445

PATIENT
  Age: 51 Year
  Sex: Female
  Weight: 41 kg

DRUGS (3)
  1. FEMARA [Suspect]
     Indication: BREAST CANCER STAGE III
     Dosage: 2.5 mg, daily
     Route: 048
     Dates: start: 20120907, end: 20120924
  2. GOSHAJINKIGAN [Concomitant]
  3. PYDOXAL [Concomitant]

REACTIONS (5)
  - Organising pneumonia [Recovering/Resolving]
  - Malaise [Unknown]
  - Pyrexia [Unknown]
  - Dyspnoea [Unknown]
  - Cough [Unknown]
